FAERS Safety Report 8000355-5 (Version None)
Quarter: 2011Q4

REPORT INFORMATION
  Report Type: 
  Country: None (occurrence: None)
  Receive Date: 20111220
  Receipt Date: 20111220
  Transmission Date: 20120403
  Serious: Yes (Other)
  Sender: FDA-Public Use
  Company Number: None

PATIENT
  Age: 34 Year
  Sex: Female
  Weight: 61.2356 kg

DRUGS (1)
  1. LAMOTRIGINE [Suspect]
     Indication: BIPOLAR I DISORDER
     Dosage: 350 MG EVERY NIGHT ORALLY
     Route: 048
     Dates: start: 20110401

REACTIONS (3)
  - COMMUNICATION DISORDER [None]
  - COGNITIVE DISORDER [None]
  - MENTAL IMPAIRMENT [None]
